FAERS Safety Report 12365131 (Version 1)
Quarter: 2016Q2

REPORT INFORMATION
  Report Type: Spontaneous
  Country: US (occurrence: None)
  Receive Date: 20160512
  Receipt Date: 20160512
  Transmission Date: 20160815
  Serious: Yes (Life-Threatening, Hospitalization, Disabling)
  Sender: FDA-Public Use
  Company Number: None

PATIENT
  Age: 29 Year
  Sex: Male
  Weight: 49.9 kg

DRUGS (2)
  1. CIPROFLOXACIN. [Suspect]
     Active Substance: CIPROFLOXACIN
     Indication: URINARY TRACT INFECTION
  2. ANTI ACID [Concomitant]

REACTIONS (13)
  - Abasia [None]
  - Muscular weakness [None]
  - Visual impairment [None]
  - Gastric disorder [None]
  - Dyspnoea [None]
  - Rash [None]
  - Skin burning sensation [None]
  - Impaired work ability [None]
  - Thinking abnormal [None]
  - Feeling abnormal [None]
  - Weight decreased [None]
  - Nervous system disorder [None]
  - Nightmare [None]

NARRATIVE: CASE EVENT DATE: 20150420
